FAERS Safety Report 14279011 (Version 1)
Quarter: 2017Q4

REPORT INFORMATION
  Report Type: Spontaneous
  Country: RU (occurrence: RU)
  Receive Date: 20171213
  Receipt Date: 20171213
  Transmission Date: 20180321
  Serious: Yes (Other)
  Sender: FDA-Public Use
  Company Number: RU-ASTRAZENECA-2017SF26177

PATIENT
  Age: 64 Year
  Sex: Male
  Weight: 90 kg

DRUGS (2)
  1. BRILINTA [Suspect]
     Active Substance: TICAGRELOR
     Indication: STENT PLACEMENT
     Route: 048
     Dates: start: 20161129
  2. BRILINTA [Suspect]
     Active Substance: TICAGRELOR
     Indication: MYOCARDIAL INFARCTION
     Route: 048
     Dates: start: 20161129

REACTIONS (2)
  - Myocardial infarction [Recovered/Resolved with Sequelae]
  - Vascular stent thrombosis [Unknown]

NARRATIVE: CASE EVENT DATE: 201705
